FAERS Safety Report 24287807 (Version 1)
Quarter: 2024Q3

REPORT INFORMATION
  Report Type: Spontaneous
  Country: CN (occurrence: CN)
  Receive Date: 20240905
  Receipt Date: 20240905
  Transmission Date: 20241017
  Serious: Yes (Hospitalization, Disabling)
  Sender: ROCHE
  Company Number: CN-BoehringerIngelheim-2024-BI-049195

PATIENT
  Age: 78 Year
  Sex: Male

DRUGS (2)
  1. ALTEPLASE [Suspect]
     Active Substance: ALTEPLASE
     Indication: Thrombotic stroke
     Route: 042
     Dates: start: 20240608, end: 20240608
  2. URAPIDIL [Concomitant]
     Active Substance: URAPIDIL
     Route: 042
     Dates: start: 20240610, end: 20240611

REACTIONS (2)
  - Upper gastrointestinal haemorrhage [Recovered/Resolved]
  - Headache [Recovered/Resolved]

NARRATIVE: CASE EVENT DATE: 20240609
